FAERS Safety Report 21753132 (Version 2)
Quarter: 2022Q4

REPORT INFORMATION
  Report Type: Report from Study
  Country: US (occurrence: US)
  Receive Date: 20221220
  Receipt Date: 20221227
  Transmission Date: 20230112
  Serious: No
  Sender: FDA-Public Use
  Company Number: US-ABBVIE-4214486

PATIENT
  Age: 75 Year
  Sex: Male
  Weight: 89.811 kg

DRUGS (7)
  1. HUMIRA [Suspect]
     Active Substance: ADALIMUMAB
     Indication: Rheumatoid arthritis
     Route: 058
     Dates: start: 20220601, end: 20220815
  2. HUMIRA [Suspect]
     Active Substance: ADALIMUMAB
     Route: 058
     Dates: start: 20190415, end: 20211021
  3. RINVOQ [Suspect]
     Active Substance: UPADACITINIB
     Indication: Rheumatoid arthritis
     Dosage: 15 MILLIGRAM
     Route: 048
     Dates: start: 20211022, end: 20220301
  4. ASPIRIN [Concomitant]
     Active Substance: ASPIRIN
     Indication: Product used for unknown indication
     Route: 065
  5. ATORVASTATIN [Concomitant]
     Active Substance: ATORVASTATIN
     Indication: Product used for unknown indication
     Dates: start: 20190415
  6. Pfizer/BioNTech COVD-19 Vaccine [Concomitant]
     Indication: COVID-19 immunisation
     Dosage: DOSE 1?ONE IN ONCE
     Route: 030
     Dates: start: 202103, end: 202103
  7. Pfizer/BioNTech COVD-19 Vaccine [Concomitant]
     Indication: COVID-19 immunisation
     Dosage: DOSE 2?ONE IN ONCE
     Route: 030
     Dates: start: 202104, end: 202104

REACTIONS (3)
  - Infection [Unknown]
  - Therapeutic product effect decreased [Unknown]
  - Fear [Unknown]

NARRATIVE: CASE EVENT DATE: 20211021
